FAERS Safety Report 8244869-1 (Version None)
Quarter: 2012Q1

REPORT INFORMATION
  Report Type: 
  Country: None (occurrence: None)
  Receive Date: 20120329
  Receipt Date: 20110719
  Transmission Date: 20120608
  Serious: No
  Sender: FDA-Public Use
  Company Number: US-MYLANLABS-2011S1014965

PATIENT
  Age: 72 Year
  Sex: Female

DRUGS (2)
  1. OTHER RESPIRATORY SYSTEM PRODUCTS [Concomitant]
     Dosage: UNKNOWN INHALERS
  2. FENTANYL-100 [Suspect]
     Indication: PAIN
     Dosage: Q72HR
     Route: 062
     Dates: start: 20110705

REACTIONS (1)
  - COAGULATION TIME PROLONGED [None]
